FAERS Safety Report 15137260 (Version 2)
Quarter: 2018Q3

REPORT INFORMATION
  Report Type: Report from Study
  Country: None (occurrence: GB)
  Receive Date: 20180712
  Receipt Date: 20180817
  Transmission Date: 20181010
  Serious: Yes (Hospitalization)
  Sender: FDA-Public Use
  Company Number: GB-BAUSCH-BL-2018-018982

PATIENT
  Age: 83 Year
  Sex: Female

DRUGS (31)
  1. OXYBUTYNIN. [Concomitant]
     Active Substance: OXYBUTYNIN CHLORIDE
     Indication: INCONTINENCE
     Dosage: DOSAGE FORM: UNSPECIFIED
     Route: 048
     Dates: start: 20160602
  2. DOMPERIDONE [Concomitant]
     Active Substance: DOMPERIDONE
     Indication: NAUSEA
     Dosage: DOSAGE FORM: UNSPECIFIED
     Route: 048
     Dates: start: 20170224
  3. LANSOPRAZOLE. [Concomitant]
     Active Substance: LANSOPRAZOLE
     Indication: DYSPEPSIA
  4. VELCADE [Suspect]
     Active Substance: BORTEZOMIB
     Dosage: DOSAGE FORM: LYOPHILIZED POWDER, ON DAYS 1, 8, 15 AND 22
     Route: 058
     Dates: start: 20170407, end: 20170605
  5. VELCADE [Suspect]
     Active Substance: BORTEZOMIB
     Dosage: DOSAGE FORM: LYOPHILIZED POWDER, ON DAYS 1, 8, 15 AND 22 OF EACH 35?DAY CYCLE FOR CYCLES 9 AND BE...
     Route: 058
     Dates: start: 20170512, end: 20170714
  6. VENETOCLAX. [Suspect]
     Active Substance: VENETOCLAX
     Indication: PLASMA CELL MYELOMA
     Route: 048
     Dates: start: 20170106, end: 20180501
  7. AMLODIPINE [Concomitant]
     Active Substance: AMLODIPINE BESYLATE
     Indication: HYPERTENSION
     Dosage: DOSAGE FORM: UNSPECIFIED
     Route: 048
     Dates: start: 20161102
  8. GABAPENTIN. [Concomitant]
     Active Substance: GABAPENTIN
     Indication: BURSITIS
     Dosage: DOSAGE FORM: UNSPECIFIED
     Route: 048
     Dates: start: 20161117
  9. LEKOVIT CA [Concomitant]
     Active Substance: CALCIUM CARBONATE\CHOLECALCIFEROL
     Indication: CALCIUM DEFICIENCY
  10. PAMIDRONATE [Concomitant]
     Active Substance: PAMIDRONATE DISODIUM
     Indication: BONE PAIN
     Dosage: DOSAGE FORM: UNSPECIFIED
     Route: 048
     Dates: start: 20170728
  11. LOPERAMIDE [Concomitant]
     Active Substance: LOPERAMIDE
     Indication: DIARRHOEA
     Dosage: DOSAGE FORM: UNSPECIFIED?AS REQUIRED
     Route: 048
     Dates: start: 20170512
  12. DEXAMETHASONE. [Suspect]
     Active Substance: DEXAMETHASONE
     Indication: PLASMA CELL MYELOMA
     Dosage: DOSAGE FORM: UNSPECIFIED, ON DAYS 1, 2, 4, 5, 8, 9, 11 AND 12 OF EACH 21?DAY CYCLE FOR CYCLES 1?8
     Route: 048
     Dates: start: 20170106, end: 20170117
  13. DEXAMETHASONE. [Suspect]
     Active Substance: DEXAMETHASONE
     Dosage: DOSAGE FORM: UNSPECIFIED, ON DAYS 1, 2, 4, 5, 8, 9, 11 AND 12 OF EACH 21?DAY CYCLE FOR CYCLES 1?8
     Route: 048
     Dates: start: 20170512, end: 20170613
  14. VENETOCLAX. [Suspect]
     Active Substance: VENETOCLAX
     Route: 048
     Dates: start: 20180518
  15. FUROSEMIDE. [Concomitant]
     Active Substance: FUROSEMIDE
     Indication: OEDEMA PERIPHERAL
     Dosage: DOSAGE FORM: UNSPECIFIED
     Route: 048
     Dates: start: 20170208
  16. COCODAMOL [Concomitant]
     Active Substance: ACETAMINOPHEN\CODEINE PHOSPHATE
     Indication: HEADACHE
     Dosage: DOSAGE FORM: UNSPECIFIED
     Route: 048
     Dates: start: 20170729
  17. LEKOVIT CA [Concomitant]
     Active Substance: CALCIUM CARBONATE\CHOLECALCIFEROL
     Indication: VITAMIN D DEFICIENCY
     Route: 048
     Dates: start: 20101202
  18. LEKOVIT CA [Concomitant]
     Active Substance: CALCIUM CARBONATE\CHOLECALCIFEROL
     Indication: PROPHYLAXIS
  19. DEXAMETHASONE. [Suspect]
     Active Substance: DEXAMETHASONE
     Dosage: DOSAGE FORM: UNSPECIFIED, ON DAYS 1, 2, 8, 9, 15, 16, 22 AND 23 OF EACH 35?DAY CYCLE FOR CYCLES 9
     Route: 048
     Dates: start: 20171110
  20. DEXAMETHASONE. [Suspect]
     Active Substance: DEXAMETHASONE
     Dosage: DOSAGE FORM: UNSPECIFIED, ON DAYS 1, 2, 8, 9, 15, 16, 22 AND 23 OF EACH 35?DAY CYCLE FOR CYCLES 9
     Route: 048
     Dates: start: 20170630, end: 20171021
  21. VELCADE [Suspect]
     Active Substance: BORTEZOMIB
     Dosage: DOSAGE FORM: LYOPHILIZED POWDER, ON DAYS 1, 8, 15 AND 22 OF EACH 35?DAY CYCLE FOR CYCLES 9 AND BE...
     Route: 058
     Dates: start: 20170728
  22. PARACETAMOL [Concomitant]
     Active Substance: ACETAMINOPHEN
     Indication: HEADACHE
     Dosage: DOSAGE FORM: UNSPECIFIED
     Route: 048
     Dates: start: 20170729
  23. DEXAMETHASONE. [Suspect]
     Active Substance: DEXAMETHASONE
     Dosage: DOSAGE FORM: UNSPECIFIED, ON DAYS 1, 2, 4, 5, 8, 9, 11 AND 12 OF EACH 21?DAY CYCLE FOR CYCLES 1?8
     Route: 048
     Dates: start: 20170217, end: 20170429
  24. ASPIRIN. [Concomitant]
     Active Substance: ASPIRIN
     Indication: PROPHYLAXIS
     Dosage: DOSAGE FORM: UNSPECIFIED
     Route: 048
     Dates: start: 20150529
  25. FOLIC ACID. [Concomitant]
     Active Substance: FOLIC ACID
     Indication: FOLATE DEFICIENCY
     Dosage: DOSAGE FORM: UNSPECIFIED
     Route: 048
     Dates: start: 20171031
  26. DOXAZOSIN [Concomitant]
     Active Substance: DOXAZOSIN\DOXAZOSIN MESYLATE
     Indication: HYPERTENSION
     Dosage: DOSAGE FORM: UNSPECIFIED
     Route: 048
     Dates: start: 20170630
  27. FERROUS SULFATE. [Concomitant]
     Active Substance: FERROUS SULFATE
     Indication: IRON DEFICIENCY ANAEMIA
     Dosage: DOSAGE FORM: UNSPECIFIED
     Route: 048
     Dates: start: 20171031
  28. VELCADE [Suspect]
     Active Substance: BORTEZOMIB
     Indication: PLASMA CELL MYELOMA
     Dosage: DOSAGE FORM: LYOPHILIZED POWDER, ON DAYS 1, 8, 15 AND 22 OF EACH 35?DAY CYCLE FOR CYCLES 9 AND BE...
     Route: 058
     Dates: start: 20170106, end: 20170227
  29. ERYTHROPOIETIN [Concomitant]
     Active Substance: ERYTHROPOIETIN
     Indication: ANAEMIA
     Dosage: DOSAGE FORM: UNSPECIFIED, IN 1 WEEK.
     Route: 058
     Dates: start: 20161118
  30. POTASSIUM [Concomitant]
     Active Substance: POTASSIUM
     Indication: BLOOD POTASSIUM DECREASED
     Dosage: DOSAGE FORM: UNSPECIFIED
     Route: 048
     Dates: start: 20170207
  31. LANSOPRAZOLE. [Concomitant]
     Active Substance: LANSOPRAZOLE
     Indication: HIATUS HERNIA
     Dosage: DOSAGE FORM: UNSPECIFIED
     Route: 048
     Dates: start: 201308

REACTIONS (2)
  - Urinary tract infection [Recovered/Resolved]
  - Lung infection [Recovered/Resolved]

NARRATIVE: CASE EVENT DATE: 20180429
